FAERS Safety Report 7623448-0 (Version None)
Quarter: 2011Q3

REPORT INFORMATION
  Report Type: 
  Country: None (occurrence: None)
  Receive Date: 20110720
  Receipt Date: 20110711
  Transmission Date: 20111222
  Serious: Yes (Hospitalization, Other)
  Sender: FDA-Public Use
  Company Number: PHHY2011GB61470

PATIENT
  Age: 71 Year
  Sex: Female

DRUGS (7)
  1. CALCICHEW D3 [Concomitant]
     Dosage: UNK
  2. ENALAPRIL MALEATE [Concomitant]
     Dosage: UNK
  3. MAGNESIUM GLYCEROPHOSPHATE [Concomitant]
     Dosage: UNK
  4. SIMVASTATIN [Suspect]
     Dosage: 80 MG, QD
     Route: 048
     Dates: start: 20110501
  5. AMLODIPINE [Concomitant]
     Dosage: UNK
  6. BENDROFLUMETHIAZIDE [Concomitant]
     Dosage: UNK
  7. ACETAMINOPHEN [Concomitant]
     Dosage: UNK

REACTIONS (6)
  - MYOPATHY [None]
  - BLOOD CREATINE PHOSPHOKINASE INCREASED [None]
  - RENAL IMPAIRMENT [None]
  - MUSCULAR WEAKNESS [None]
  - FALL [None]
  - RHABDOMYOLYSIS [None]
